FAERS Safety Report 12155097 (Version 1)
Quarter: 2016Q1

REPORT INFORMATION
  Report Type: Spontaneous
  Country: US (occurrence: None)
  Receive Date: 20160304
  Receipt Date: 20160304
  Transmission Date: 20160526
  Serious: Yes (Hospitalization)
  Sender: FDA-Public Use
  Company Number: None

PATIENT
  Age: 65 Year
  Sex: Female
  Weight: 96.6 kg

DRUGS (3)
  1. TAXOL [Suspect]
     Active Substance: PACLITAXEL
     Dates: end: 20160202
  2. DOXORUBICIN HYDROCHLORIDE. [Suspect]
     Active Substance: DOXORUBICIN HYDROCHLORIDE
     Dates: end: 20151013
  3. CYCLOPHOSPHAMIDE. [Suspect]
     Active Substance: CYCLOPHOSPHAMIDE
     Dates: end: 20151013

REACTIONS (10)
  - Paraesthesia [None]
  - Acute kidney injury [None]
  - Burning sensation [None]
  - Blood glucose decreased [None]
  - Dysuria [None]
  - Pain in extremity [None]
  - Peripheral sensory neuropathy [None]
  - Fall [None]
  - Mental status changes [None]
  - Rhabdomyolysis [None]

NARRATIVE: CASE EVENT DATE: 20160213
